FAERS Safety Report 23363703 (Version 6)
Quarter: 2024Q2

REPORT INFORMATION
  Report Type: Spontaneous
  Country: US (occurrence: US)
  Receive Date: 20240103
  Receipt Date: 20240418
  Transmission Date: 20240716
  Serious: Yes (Other)
  Sender: FDA-Public Use
  Company Number: US-009507513-2108USA000244

PATIENT
  Sex: Female

DRUGS (4)
  1. ZOSTAVAX [Suspect]
     Active Substance: VARICELLA-ZOSTER VIRUS STRAIN OKA/MERCK LIVE ANTIGEN
     Indication: Prophylaxis
     Route: 065
     Dates: start: 20141208
  2. STERILE DILUENT (WATER) [Suspect]
     Active Substance: WATER
     Dosage: UNK
     Dates: start: 20141208, end: 20141208
  3. VIVELLE-DOT [Concomitant]
     Active Substance: ESTRADIOL
     Indication: Menopause
     Dosage: 0.05 MILLIGRAM
  4. ATORVASTATIN CALCIUM [Concomitant]
     Active Substance: ATORVASTATIN CALCIUM
     Indication: Hypertension
     Dosage: 40 MILLIGRAM

REACTIONS (18)
  - Posterior capsule opacification [Unknown]
  - Hypothyroidism [Unknown]
  - Punctate keratitis [Unknown]
  - Autoimmune disorder [Not Recovered/Not Resolved]
  - Polymyalgia rheumatica [Unknown]
  - Giant cell arteritis [Not Recovered/Not Resolved]
  - Visual field defect [Unknown]
  - Dry eye [Unknown]
  - Blepharoplasty [Unknown]
  - Ectropion [Unknown]
  - Blood glucose increased [Unknown]
  - Carbon dioxide increased [Unknown]
  - Peripheral swelling [Not Recovered/Not Resolved]
  - Muscular weakness [Not Recovered/Not Resolved]
  - Hypoacusis [Not Recovered/Not Resolved]
  - Weight increased [Unknown]
  - Depression [Unknown]
  - Motor dysfunction [Unknown]

NARRATIVE: CASE EVENT DATE: 20160401
